FAERS Safety Report 7492646-1 (Version None)
Quarter: 2011Q2

REPORT INFORMATION
  Report Type: 
  Country: None (occurrence: None)
  Receive Date: 20110519
  Receipt Date: 20091122
  Transmission Date: 20111010
  Serious: Yes (Death, Other)
  Sender: FDA-Public Use
  Company Number: US-BAYER-200940578NA

PATIENT
  Age: 59 Year
  Sex: Female
  Weight: 72 kg

DRUGS (6)
  1. AMBIEN [Concomitant]
  2. DIGOXIN [Concomitant]
  3. TRASYLOL [Suspect]
     Indication: AORTIC ANEURYSM REPAIR
  4. CARDIZEM [Concomitant]
     Dosage: 120 MG, UNK
  5. TRASYLOL [Suspect]
     Indication: CARDIAC OPERATION
     Route: 042
     Dates: start: 20041029
  6. LOPRESSOR [Concomitant]
     Dosage: 50 MG, UNK

REACTIONS (13)
  - RENAL INJURY [None]
  - MULTI-ORGAN FAILURE [None]
  - RENAL IMPAIRMENT [None]
  - INJURY [None]
  - ANHEDONIA [None]
  - STRESS [None]
  - UNEVALUABLE EVENT [None]
  - EMOTIONAL DISTRESS [None]
  - ANXIETY [None]
  - FEAR [None]
  - RENAL FAILURE [None]
  - PAIN [None]
  - DEATH [None]
